FAERS Safety Report 10916873 (Version 2)
Quarter: 2015Q1

REPORT INFORMATION
  Report Type: Spontaneous
  Country: JP (occurrence: JP)
  Receive Date: 20150316
  Receipt Date: 20150323
  Transmission Date: 20150721
  Serious: Yes (Hospitalization)
  Sender: FDA-Public Use
  Company Number: JP-ELI_LILLY_AND_COMPANY-JP201502001648

PATIENT
  Age: 82 Year
  Sex: Female
  Weight: 43 kg

DRUGS (3)
  1. NEUROTROPIN                        /06251301/ [Concomitant]
     Dosage: UNK
     Route: 048
     Dates: start: 20150117
  2. FORTEO [Suspect]
     Active Substance: TERIPARATIDE
     Indication: OSTEOPOROSIS
     Dosage: 20 UG, QD
     Route: 058
     Dates: start: 20150126, end: 20150130
  3. CELECOX [Concomitant]
     Active Substance: CELECOXIB
     Dosage: UNK
     Route: 048
     Dates: start: 20150116

REACTIONS (8)
  - Drug eruption [Recovered/Resolved]
  - Stomatitis [Unknown]
  - Ocular discomfort [Unknown]
  - Paraesthesia oral [Unknown]
  - Decreased appetite [Unknown]
  - Pyrexia [Recovered/Resolved]
  - Oropharyngeal discomfort [Unknown]
  - Ocular hyperaemia [Unknown]

NARRATIVE: CASE EVENT DATE: 20150131
